FAERS Safety Report 4975548-1 (Version None)
Quarter: 2006Q2

REPORT INFORMATION
  Report Type: 
  Country: None (occurrence: None)
  Receive Date: 20060410
  Receipt Date: 20001017
  Transmission Date: 20061013
  Serious: Yes (Life-Threatening)
  Sender: FDA-Public Use
  Company Number: 2006BL001734

PATIENT
  Age: 50 Year
  Sex: Female

DRUGS (10)
  1. MINIMS CYCLOPENTOLATE HYDROCHLORIDE 0.5% (CYCLOPENTOLATE HYDROCHLORIDE [Suspect]
     Indication: DRUG USE FOR UNKNOWN INDICATION
     Dosage: 0.05 MILLILITERS; ONCE A DAY;
     Dates: start: 20000913, end: 20000913
  2. AMITRIPTYLINYM [Concomitant]
  3. ASCAL BRUISTABLET [Concomitant]
  4. CLARITINE /BE/ [Concomitant]
  5. ESTRADIOLUM 50 PLEISTER [Concomitant]
  6. TRANSDERMAAL [Concomitant]
  7. FENPROCOUMON [Concomitant]
  8. LOSEC MUPS TABLET MGA [Concomitant]
  9. RHINOCORT NEVEL NASALE INHVLST [Concomitant]
  10. ZOCOR [Concomitant]

REACTIONS (4)
  - ANAPHYLACTIC SHOCK [None]
  - FALL [None]
  - OCULAR HYPERAEMIA [None]
  - TACHYCARDIA [None]
